FAERS Safety Report 19305684 (Version 1)
Quarter: 2021Q2

REPORT INFORMATION
  Report Type: Report from Study
  Country: IT (occurrence: IT)
  Receive Date: 20210526
  Receipt Date: 20210526
  Transmission Date: 20210717
  Serious: Yes (Hospitalization)
  Sender: FDA-Public Use
  Company Number: IT-TEVA-2021-IT-1914474

PATIENT
  Age: 88 Year
  Sex: Female

DRUGS (5)
  1. COUMADIN [Interacting]
     Active Substance: WARFARIN SODIUM
     Dosage: 1 DF
     Route: 048
  2. ACETYLSALICYLIC ACID [Interacting]
     Active Substance: ASPIRIN
     Dosage: 1 DF
     Route: 048
  3. SIMVASTATIN. [Concomitant]
     Active Substance: SIMVASTATIN
  4. CLOPIDOGREL [Suspect]
     Active Substance: CLOPIDOGREL BISULFATE
     Dosage: 1 DF
     Route: 048
  5. TRIPLIAM 10 MG/2,5 MG/10 MG COMPRESSE RIVESTITE CON FILM [Concomitant]
     Active Substance: AMLODIPINE\INDAPAMIDE\PERINDOPRIL

REACTIONS (4)
  - Haemorrhagic erosive gastritis [Recovering/Resolving]
  - Gastrointestinal haemorrhage [Recovering/Resolving]
  - Anaemia [Recovering/Resolving]
  - Drug interaction [Unknown]

NARRATIVE: CASE EVENT DATE: 20200105
